FAERS Safety Report 8761742 (Version 2)
Quarter: 2013Q1

REPORT INFORMATION
  Report Type: Spontaneous
  Country: DE (occurrence: None)
  Receive Date: 20120821
  Receipt Date: 20121115
  Transmission Date: 20140127
  Serious: Yes (Hospitalization)
  Sender: FDA-Public Use
  Company Number: ACO_31508_2012

PATIENT
  Age: 49 Year
  Sex: Female

DRUGS (3)
  1. FAMPYRA [Suspect]
     Indication: SECONDARY PROGRESSIVE MULTIPLE SCLEROSIS
     Route: 048
     Dates: start: 201201, end: 201201
  2. EBIXA (MEMANTINE HYDROCHLORIDE) [Concomitant]
  3. DETRUSITOL (TOLTERODINE L-TARTRATE) [Concomitant]

REACTIONS (1)
  - Convulsion [None]
